FAERS Safety Report 15229420 (Version 5)
Quarter: 2018Q4

REPORT INFORMATION
  Report Type: Report from Study
  Country: JP (occurrence: JP)
  Receive Date: 20180802
  Receipt Date: 20181031
  Transmission Date: 20190204
  Serious: Yes (Life-Threatening, Hospitalization)
  Sender: FDA-Public Use
  Company Number: JP-AMGEN-JPNCT2018103351

PATIENT
  Age: 80 Year
  Sex: Male
  Weight: 64.3 kg

DRUGS (25)
  1. PANTETHINE [Concomitant]
     Active Substance: PANTETHINE
     Dosage: 200 MG, UNK
     Dates: start: 20180417, end: 20180430
  2. KARY UNI [Concomitant]
     Active Substance: PIRENOXINE
     Dosage: 1 GTT, UNK
     Route: 047
     Dates: start: 20180427
  3. BROTIZOLAM [Concomitant]
     Active Substance: BROTIZOLAM
     Dosage: 250 MUG, UNK
     Dates: start: 20151004
  4. FEBUXOSTAT. [Concomitant]
     Active Substance: FEBUXOSTAT
     Dosage: 40 MG, UNK
     Dates: start: 20150925, end: 20180824
  5. LANSOPRAZOLE. [Concomitant]
     Active Substance: LANSOPRAZOLE
     Dosage: 15 MG, UNK
     Dates: start: 20150925
  6. ACICLOVIR [Concomitant]
     Active Substance: ACYCLOVIR
     Dosage: 400 MG, UNK
     Dates: start: 20151015
  7. METHYLPREDNISOLONE. [Concomitant]
     Active Substance: METHYLPREDNISOLONE
     Dosage: 20 MG, UNK
     Route: 048
     Dates: start: 20180308
  8. ADOAIR [Concomitant]
     Active Substance: FLUTICASONE PROPIONATE\SALMETEROL XINAFOATE
     Dosage: 1 UNK, UNK
     Dates: start: 20180320, end: 20180824
  9. LEVOFLOXACIN. [Concomitant]
     Active Substance: LEVOFLOXACIN
     Dosage: 1 GTT, UNK
     Route: 047
     Dates: start: 20180427
  10. CARVEDILOL. [Concomitant]
     Active Substance: CARVEDILOL
     Dosage: 10 MG, UNK
     Dates: start: 20151110
  11. MAGNESIUM OXIDE. [Concomitant]
     Active Substance: MAGNESIUM OXIDE
     Dosage: 330 MG, UNK
     Dates: start: 20180417, end: 20180430
  12. TELMISARTAN. [Concomitant]
     Active Substance: TELMISARTAN
     Dosage: 80 MG, UNK
     Dates: start: 20170117
  13. CARFILZOMIB [Suspect]
     Active Substance: CARFILZOMIB
     Indication: PLASMA CELL MYELOMA
     Dosage: 36 MG/M2, PER CHEMO REGIM
     Route: 042
     Dates: start: 20180306, end: 20180725
  14. SENNOSIDE A+B CALCIUM [Concomitant]
     Active Substance: SENNOSIDES A AND B
     Dosage: 24 MG, UNK
     Dates: start: 20151006
  15. CALONAL [Concomitant]
     Active Substance: ACETAMINOPHEN
     Dosage: 800 MG, UNK
     Route: 048
     Dates: start: 20180306
  16. DEXAMETHASONE. [Suspect]
     Active Substance: DEXAMETHASONE
     Indication: PLASMA CELL MYELOMA
     Dosage: 8-20 MG, UNK
     Route: 065
     Dates: start: 20180306, end: 20180724
  17. FUROSEMIDE. [Concomitant]
     Active Substance: FUROSEMIDE
     Dosage: 20-40 MG, UNK
     Dates: start: 20180403, end: 20180725
  18. DAIPHEN [Concomitant]
     Active Substance: SULFAMETHOXAZOLE\TRIMETHOPRIM
     Dosage: 0.5 UNK, UNK
     Dates: start: 20151001
  19. MONTELUKAST [Concomitant]
     Active Substance: MONTELUKAST SODIUM
     Dosage: 10 MG, UNK
     Route: 048
     Dates: start: 20180306
  20. ASPIRIN. [Concomitant]
     Active Substance: ASPIRIN
     Dosage: 100 MG, UNK
     Route: 048
     Dates: start: 20180306
  21. DARATUMUMAB [Suspect]
     Active Substance: DARATUMUMAB
     Indication: PLASMA CELL MYELOMA
     Dosage: 16 MG/KG, PER CHEMO REGIM
     Route: 042
     Dates: start: 20180306, end: 20180724
  22. AMLODIPINE BESILATE [Concomitant]
     Active Substance: AMLODIPINE BESYLATE
     Dosage: 5-10 MG, UNK
     Dates: start: 20151110, end: 20180824
  23. RESTAMIN [Concomitant]
     Active Substance: DIPHENHYDRAMINE
     Dosage: 30 MG, UNK
     Route: 048
     Dates: start: 20180306
  24. ZOLEDRONIC ACID [Concomitant]
     Active Substance: ZOLEDRONIC ACID
     Dosage: 4 MG, UNK
     Route: 042
     Dates: start: 20180404
  25. GRANISETRON [Concomitant]
     Active Substance: GRANISETRON
     Dosage: 3 MG, UNK
     Route: 042
     Dates: start: 20180306

REACTIONS (1)
  - Pneumonia [Recovered/Resolved]

NARRATIVE: CASE EVENT DATE: 20180725
